FAERS Safety Report 23571596 (Version 2)
Quarter: 2024Q2

REPORT INFORMATION
  Report Type: Report from Study
  Country: US (occurrence: None)
  Receive Date: 20240227
  Receipt Date: 20240410
  Transmission Date: 20240716
  Serious: Yes (Other)
  Sender: FDA-Public Use
  Company Number: 2024A042448

PATIENT
  Sex: Male

DRUGS (1)
  1. CALQUENCE [Suspect]
     Active Substance: ACALABRUTINIB
     Route: 048

REACTIONS (6)
  - Leukaemia [Unknown]
  - Neoplasm malignant [Unknown]
  - Haemorrhage [Unknown]
  - White blood cell count increased [Unknown]
  - Drug ineffective [Unknown]
  - Intentional dose omission [Unknown]
